FAERS Safety Report 20957856 (Version 1)
Quarter: 2022Q2

REPORT INFORMATION
  Report Type: Spontaneous
  Country: US (occurrence: None)
  Receive Date: 20220614
  Receipt Date: 20220614
  Transmission Date: 20220721
  Serious: No
  Sender: FDA-Public Use
  Company Number: None

PATIENT
  Sex: Male

DRUGS (1)
  1. ODOMZO [Suspect]
     Active Substance: SONIDEGIB
     Indication: Basal cell carcinoma
     Dosage: 200MG ONCE DAILY ORAL
     Route: 048
     Dates: start: 20210721, end: 20220613

REACTIONS (2)
  - Treatment failure [None]
  - Drug ineffective [None]
